FAERS Safety Report 5698532-1 (Version None)
Quarter: 2008Q2

REPORT INFORMATION
  Report Type: 
  Country: None (occurrence: None)
  Receive Date: 20080408
  Receipt Date: 20060913
  Transmission Date: 20081010
  Serious: No
  Sender: FDA-Public Use
  Company Number: US-BAYER-US-2006-027035

PATIENT
  Age: 40 Year
  Sex: Female
  Weight: 53 kg

DRUGS (3)
  1. CLIMARA [Suspect]
     Indication: MENOPAUSAL SYMPTOMS
     Route: 062
     Dates: start: 20060701
  2. PROMETRIUM [Concomitant]
     Dosage: UNIT DOSE: 100 MG
  3. FLUTAMIDE [Concomitant]
     Indication: ACNE

REACTIONS (1)
  - VAGINAL HAEMORRHAGE [None]
